FAERS Safety Report 11013705 (Version 2)
Quarter: 2015Q2

REPORT INFORMATION
  Report Type: Spontaneous
  Country: US (occurrence: US)
  Receive Date: 20150411
  Receipt Date: 20150526
  Transmission Date: 20150821
  Serious: Yes (Other)
  Sender: FDA-Public Use
  Company Number: US-JNJFOC-20130907876

PATIENT

DRUGS (2)
  1. OXYBUTYNIN HYDROCHLORIDE [Suspect]
     Active Substance: OXYBUTYNIN CHLORIDE
     Indication: BLADDER CANCER
     Dosage: UNTIL DISAPPEARANCE OF THE SYMPTOMATOLOGY
     Route: 065
  2. OFLOXACIN. [Suspect]
     Active Substance: OFLOXACIN
     Indication: BLADDER CANCER
     Dosage: 10 DAYS
     Route: 065

REACTIONS (2)
  - Dry mouth [Unknown]
  - Urinary retention [Unknown]
